FAERS Safety Report 5256604-X (Version None)
Quarter: 2007Q1

REPORT INFORMATION
  Report Type: 
  Country: None (occurrence: None)
  Receive Date: 20070306
  Receipt Date: 20070222
  Transmission Date: 20070707
  Serious: Yes (Other)
  Sender: FDA-Public Use
  Company Number: US-ROCHE-484154

PATIENT
  Sex: Male

DRUGS (1)
  1. ACCUTANE [Suspect]
     Indication: DRUG USE FOR UNKNOWN INDICATION
     Route: 048

REACTIONS (12)
  - ANAEMIA [None]
  - ANAL FISSURE [None]
  - ARTHRALGIA [None]
  - COLITIS ULCERATIVE [None]
  - CROHN'S DISEASE [None]
  - DIZZINESS [None]
  - FATIGUE [None]
  - GASTRITIS [None]
  - HEADACHE [None]
  - INFLAMMATORY BOWEL DISEASE [None]
  - MUSCULAR WEAKNESS [None]
  - VISUAL DISTURBANCE [None]
